FAERS Safety Report 22351889 (Version 1)
Quarter: 2023Q2

REPORT INFORMATION
  Report Type: Spontaneous
  Country: US (occurrence: US)
  Receive Date: 20230522
  Receipt Date: 20230522
  Transmission Date: 20230721
  Serious: No
  Sender: FDA-Public Use
  Company Number: US-ALKERMES INC.-ALK-2023-002072

PATIENT
  Age: 48 Year
  Sex: Female
  Weight: 61.224 kg

DRUGS (3)
  1. VIVITROL [Suspect]
     Active Substance: NALTREXONE
     Indication: Alcoholism
     Dosage: 380 MILLIGRAM, QMO
     Route: 030
     Dates: start: 20230320
  2. ACAMPROSATE [Concomitant]
     Active Substance: ACAMPROSATE
     Indication: Product used for unknown indication
     Dosage: UNK
     Route: 065
  3. EFFEXOR [Concomitant]
     Active Substance: VENLAFAXINE HYDROCHLORIDE
     Indication: Product used for unknown indication
     Dosage: UNK
     Route: 065

REACTIONS (6)
  - Lack of administration site rotation [Recovered/Resolved]
  - Injection site reaction [Unknown]
  - Injection site mass [Unknown]
  - Injection site pain [Unknown]
  - Injection site erythema [Unknown]
  - Injection site warmth [Unknown]

NARRATIVE: CASE EVENT DATE: 20230501
